FAERS Safety Report 17764369 (Version 1)
Quarter: 2020Q2

REPORT INFORMATION
  Report Type: Spontaneous
  Country: FR (occurrence: FR)
  Receive Date: 20200511
  Receipt Date: 20200511
  Transmission Date: 20200714
  Serious: Yes (Hospitalization, Other)
  Sender: FDA-Public Use
  Company Number: FR-BRISTOL-MYERS SQUIBB COMPANY-BMS-2020-037012

PATIENT
  Age: 80 Year
  Sex: Female

DRUGS (1)
  1. NIVOLUMAB [Suspect]
     Active Substance: NIVOLUMAB
     Indication: MALIGNANT MELANOMA
     Dosage: UNK
     Route: 058
     Dates: start: 20200302

REACTIONS (3)
  - Hepatitis [Recovering/Resolving]
  - Intentional product use issue [Unknown]
  - Jaundice [Recovering/Resolving]

NARRATIVE: CASE EVENT DATE: 20200312
